FAERS Safety Report 4594309-9 (Version None)
Quarter: 2005Q1

REPORT INFORMATION
  Report Type: 
  Country: None (occurrence: None)
  Receive Date: 20050301
  Receipt Date: 20040930
  Transmission Date: 20050727
  Serious: No
  Sender: FDA-Public Use
  Company Number: US-GLAXOSMITHKLINE-A0527950A

PATIENT
  Sex: Female

DRUGS (3)
  1. VALTREX [Suspect]
     Dosage: 1G TWICE PER DAY
     Route: 048
     Dates: start: 20040801
  2. MICRONOR [Concomitant]
  3. PROBIOTIC [Concomitant]

REACTIONS (3)
  - HERPES SIMPLEX [None]
  - VAGINAL MYCOSIS [None]
  - VAGINITIS BACTERIAL [None]
